FAERS Safety Report 12576101 (Version 1)
Quarter: 2016Q3

REPORT INFORMATION
  Report Type: Spontaneous
  Country: US (occurrence: US)
  Receive Date: 20160720
  Receipt Date: 20160720
  Transmission Date: 20161109
  Serious: Yes (Hospitalization, Other)
  Sender: FDA-Public Use
  Company Number: US-SA-2016SA128925

PATIENT
  Age: 87 Year
  Sex: Female
  Weight: 69.8 kg

DRUGS (25)
  1. JAKAFI [Suspect]
     Active Substance: RUXOLITINIB
     Indication: MYELOFIBROSIS
     Route: 048
  2. SPIRONOLACTONE. [Concomitant]
     Active Substance: SPIRONOLACTONE
  3. JAKAFI [Suspect]
     Active Substance: RUXOLITINIB
     Indication: MYELOFIBROSIS
     Route: 048
     Dates: start: 20120723
  4. JAKAFI [Suspect]
     Active Substance: RUXOLITINIB
     Indication: MYELOFIBROSIS
     Route: 048
     Dates: start: 20120723
  5. LISINOPRIL. [Concomitant]
     Active Substance: LISINOPRIL
  6. NOVOLOG [Suspect]
     Active Substance: INSULIN ASPART
     Route: 065
  7. CEFUROXIME. [Concomitant]
     Active Substance: CEFUROXIME
  8. LEVOTHYROXINE. [Concomitant]
     Active Substance: LEVOTHYROXINE
  9. ASACOL [Concomitant]
     Active Substance: MESALAMINE
  10. COUMADIN [Concomitant]
     Active Substance: WARFARIN SODIUM
  11. JAKAFI [Suspect]
     Active Substance: RUXOLITINIB
     Indication: MYELOFIBROSIS
     Route: 048
  12. FISH OIL [Concomitant]
     Active Substance: FISH OIL
  13. ASPIRIN. [Concomitant]
     Active Substance: ASPIRIN
  14. LANTUS [Suspect]
     Active Substance: INSULIN GLARGINE
     Route: 065
  15. WARFARIN [Concomitant]
     Active Substance: WARFARIN
  16. FERROUS SULFATE. [Concomitant]
     Active Substance: FERROUS SULFATE
  17. LASIX [Concomitant]
     Active Substance: FUROSEMIDE
  18. OMEPRAZOLE. [Concomitant]
     Active Substance: OMEPRAZOLE
  19. SIMVASTATIN. [Concomitant]
     Active Substance: SIMVASTATIN
  20. LANTUS [Suspect]
     Active Substance: INSULIN GLARGINE
     Route: 065
  21. BALSALAZIDE [Concomitant]
     Active Substance: BALSALAZIDE
  22. GAS-X [Concomitant]
     Active Substance: DIMETHICONE
  23. ATENOLOL. [Concomitant]
     Active Substance: ATENOLOL
  24. CALCIUM [Concomitant]
     Active Substance: CALCIUM
  25. VITAMIN D [Concomitant]
     Active Substance: CHOLECALCIFEROL

REACTIONS (7)
  - Thrombosis [Unknown]
  - Pneumonia [Unknown]
  - Shock hypoglycaemic [Unknown]
  - Splenomegaly [Unknown]
  - Contusion [Unknown]
  - Anaemia [Unknown]
  - Pulmonary thrombosis [Unknown]

NARRATIVE: CASE EVENT DATE: 201508
